FAERS Safety Report 6447897-1 (Version None)
Quarter: 2009Q4

REPORT INFORMATION
  Report Type: 
  Country: None (occurrence: None)
  Receive Date: 20091120
  Receipt Date: 20091112
  Transmission Date: 20100525
  Serious: Yes (Hospitalization)
  Sender: FDA-Public Use
  Company Number: US-JNJFOC-20091104766

PATIENT
  Sex: Female
  Weight: 49.9 kg

DRUGS (3)
  1. DURAGESIC-100 [Suspect]
     Indication: DRUG USE FOR UNKNOWN INDICATION
     Route: 062
     Dates: start: 20020101, end: 20090101
  2. VICOPROFEN [Concomitant]
     Route: 048
  3. ZOLOFT [Concomitant]
     Route: 048

REACTIONS (2)
  - INTERVERTEBRAL DISC PROTRUSION [None]
  - ROAD TRAFFIC ACCIDENT [None]
